FAERS Safety Report 6241651-1 (Version None)
Quarter: 2009Q2

REPORT INFORMATION
  Report Type: 
  Country: None (occurrence: None)
  Receive Date: 20090623
  Receipt Date: 20051220
  Transmission Date: 20091009
  Serious: Yes (Death)
  Sender: FDA-Public Use
  Company Number: MX-ROCHE-501532

PATIENT
  Sex: Female
  Weight: 73 kg

DRUGS (27)
  1. MYCOPHENOLATE MOFETIL [Suspect]
     Route: 048
     Dates: start: 20030217
  2. DACLIZUMAB [Suspect]
     Route: 065
  3. CYCLOSPORINE [Suspect]
     Route: 048
     Dates: start: 20030217
  4. CYCLOSPORINE [Suspect]
     Route: 048
     Dates: start: 20030224, end: 20031129
  5. CYCLOSPORINE [Suspect]
     Route: 048
     Dates: start: 20031129, end: 20040508
  6. CYCLOSPORINE [Suspect]
     Route: 048
     Dates: start: 20040508
  7. PREDNISONE [Suspect]
     Route: 048
     Dates: start: 20030217, end: 20031028
  8. PREDNISONE [Suspect]
     Route: 048
     Dates: start: 20031028
  9. METHYLPREDNISOLONE [Suspect]
     Route: 042
     Dates: start: 20030216, end: 20030217
  10. CALCIUM CARBONATE [Concomitant]
     Dates: start: 20030220
  11. CALCIUM CARBONATE [Concomitant]
     Dates: start: 20030331
  12. GLIBENCLAMIDE [Concomitant]
     Route: 048
     Dates: start: 20030331
  13. GLIBENCLAMIDE [Concomitant]
     Route: 048
     Dates: start: 20030524
  14. INSULIN [Concomitant]
     Route: 058
     Dates: start: 20030218
  15. METFORMIN HCL [Concomitant]
     Route: 048
     Dates: start: 20030331
  16. METFORMIN HCL [Concomitant]
     Route: 048
     Dates: start: 20030524
  17. METOPROLOL SUCCINATE [Concomitant]
     Route: 048
     Dates: start: 20030224
  18. NIFEDIPINE [Concomitant]
     Route: 048
     Dates: start: 20030220
  19. NIFEDIPINE [Concomitant]
     Route: 048
     Dates: start: 20030303
  20. OMEPRAZOL [Concomitant]
     Route: 048
     Dates: start: 20040221, end: 20040307
  21. PRAVASTATIN [Concomitant]
     Route: 048
     Dates: start: 20030220
  22. RANITIDINE [Concomitant]
     Route: 042
     Dates: start: 20030217, end: 20030220
  23. RANITIDINE [Concomitant]
     Route: 048
     Dates: start: 20030220, end: 20030303
  24. RANITIDINE [Concomitant]
     Route: 048
     Dates: start: 20030303, end: 20040221
  25. RANITIDINE [Concomitant]
     Route: 048
     Dates: start: 20040307
  26. TRIMETHOPRIM [Concomitant]
     Route: 048
     Dates: start: 20030224, end: 20030303
  27. TRIMETHOPRIM [Concomitant]
     Route: 048
     Dates: start: 20030303, end: 20030524

REACTIONS (1)
  - DEATH [None]
